FAERS Safety Report 15012281 (Version 1)
Quarter: 2018Q2

REPORT INFORMATION
  Report Type: Spontaneous
  Country: ES (occurrence: ES)
  Receive Date: 20180614
  Receipt Date: 20180614
  Transmission Date: 20180711
  Serious: Yes (Other)
  Sender: FDA-Public Use
  Company Number: ES-TEVA-2018-ES-907650

PATIENT
  Age: 75 Year
  Sex: Female

DRUGS (1)
  1. PRAVASTATINA TEVA 20 MG COMPRIMIDOS EFG , 28 COMPRIMIDOS [Suspect]
     Active Substance: PRAVASTATIN
     Indication: TYPE 2 DIABETES MELLITUS
     Dosage: 0-0-1-0
     Route: 048
     Dates: start: 20180313, end: 20180409

REACTIONS (2)
  - Faeces discoloured [Recovered/Resolved]
  - Muscle spasms [Recovered/Resolved]

NARRATIVE: CASE EVENT DATE: 2018
